FAERS Safety Report 8210321-2 (Version None)
Quarter: 2012Q1

REPORT INFORMATION
  Report Type: 
  Country: None (occurrence: None)
  Receive Date: 20120314
  Receipt Date: 20111025
  Transmission Date: 20120608
  Serious: Yes (Other)
  Sender: FDA-Public Use
  Company Number: US-ASTRAZENECA-2011SE54504

PATIENT
  Age: 67 Year
  Sex: Male

DRUGS (6)
  1. TOPROL-XL [Suspect]
     Indication: CORONARY ARTERY DISEASE
     Route: 048
  2. TOPROL-XL [Suspect]
     Dosage: GENERIC METOPROLOL
  3. TOPROL-XL [Suspect]
     Indication: CARDIAC PACEMAKER INSERTION
     Route: 048
  4. TOPROL-XL [Suspect]
     Indication: AORTIC ANEURYSM
     Route: 048
  5. TOPROL-XL [Suspect]
     Dosage: GENERIC METOPROLOL
  6. TOPROL-XL [Suspect]
     Dosage: GENERIC METOPROLOL

REACTIONS (3)
  - DRUG EFFECT DECREASED [None]
  - OFF LABEL USE [None]
  - SYNCOPE [None]
